FAERS Safety Report 9358742 (Version 3)
Quarter: 2013Q4

REPORT INFORMATION
  Report Type: Spontaneous
  Country: US (occurrence: US)
  Receive Date: 20130620
  Receipt Date: 20131007
  Transmission Date: 20140711
  Serious: Yes (Hospitalization)
  Sender: FDA-Public Use
  Company Number: US-ELI_LILLY_AND_COMPANY-US201306003693

PATIENT
  Age: 18 Year
  Sex: Female
  Weight: 54.5 kg

DRUGS (6)
  1. HUMALOG LISPRO [Suspect]
     Indication: TYPE 1 DIABETES MELLITUS
     Dosage: UNK UNK, PRN
     Route: 058
     Dates: start: 1997
  2. HUMALOG LISPRO [Suspect]
     Dosage: UNK, PRN
     Route: 058
  3. LANTUS [Concomitant]
     Dosage: 15 U, BID
  4. LANTUS [Concomitant]
     Dosage: 17 U, BID
  5. LANTUS [Concomitant]
     Dosage: 12 U, EACH EVENING
  6. ABILIFY [Concomitant]
     Dosage: 2 MG, QD
     Route: 048

REACTIONS (9)
  - Diabetic ketoacidosis [Recovered/Resolved]
  - Blood glucose increased [Recovered/Resolved]
  - Tachycardia [Recovered/Resolved]
  - Blood glucose increased [Recovered/Resolved]
  - Therapeutic product ineffective [Recovered/Resolved]
  - Nausea [Unknown]
  - Vomiting [Unknown]
  - Viral infection [Unknown]
  - Drug dose omission [Unknown]
